FAERS Safety Report 6096868-6 (Version None)
Quarter: 2009Q1

REPORT INFORMATION
  Report Type: 
  Country: None (occurrence: None)
  Receive Date: 20090227
  Receipt Date: 20090218
  Transmission Date: 20090719
  Serious: Yes (Disabling, Other)
  Sender: FDA-Public Use
  Company Number: US-JNJFOC-20081206040

PATIENT
  Sex: Female
  Weight: 144.7 kg

DRUGS (7)
  1. REMICADE [Suspect]
     Indication: PSORIASIS
     Route: 042
  2. ENBREL [Concomitant]
     Indication: PSORIASIS
     Route: 050
  3. HUMIRA [Concomitant]
     Indication: PSORIASIS
  4. GLUCOPHAGE [Concomitant]
     Indication: DIABETES MELLITUS
  5. LITHIUM [Concomitant]
  6. XANAX [Concomitant]
  7. RHINOCORT [Concomitant]

REACTIONS (5)
  - DRUG INEFFECTIVE [None]
  - GAIT DISTURBANCE [None]
  - GASTROOESOPHAGEAL REFLUX DISEASE [None]
  - HYPOKINESIA [None]
  - PSORIASIS [None]
